FAERS Safety Report 13108813 (Version 1)
Quarter: 2017Q1

REPORT INFORMATION
  Report Type: Report from Study
  Country: IT (occurrence: IT)
  Receive Date: 20170112
  Receipt Date: 20170112
  Transmission Date: 20170428
  Serious: Yes (Other)
  Sender: FDA-Public Use
  Company Number: IT-BRISTOL-MYERS SQUIBB COMPANY-BMS-2017-000415

PATIENT
  Age: 78 Year
  Sex: Female

DRUGS (1)
  1. ABATACEPT [Suspect]
     Active Substance: ABATACEPT
     Indication: RHEUMATOID ARTHRITIS
     Dosage: 125 MG, QWK
     Route: 058
     Dates: start: 20160409

REACTIONS (4)
  - Abdominal wall haematoma [Recovered/Resolved]
  - Cataract [Unknown]
  - Influenza [Recovered/Resolved]
  - Cataract operation [Recovered/Resolved]

NARRATIVE: CASE EVENT DATE: 20161010
